FAERS Safety Report 17427765 (Version 1)
Quarter: 2020Q1

REPORT INFORMATION
  Report Type: Spontaneous
  Country: None (occurrence: US)
  Receive Date: 20200217
  Receipt Date: 20200217
  Transmission Date: 20200409
  Serious: No
  Sender: FDA-Public Use
  Company Number: US-AKRON, INC.-2080515

PATIENT
  Sex: Female

DRUGS (1)
  1. ZIOPTAN [Suspect]
     Active Substance: TAFLUPROST

REACTIONS (10)
  - Nausea [None]
  - Rhinorrhoea [None]
  - Pyrexia [None]
  - Eye pain [None]
  - Pruritus [None]
  - Lymphadenopathy [None]
  - Migraine [None]
  - Halo vision [None]
  - Lacrimation increased [None]
  - Headache [None]
